FAERS Safety Report 5205745-1 (Version None)
Quarter: 2007Q1

REPORT INFORMATION
  Report Type: 
  Country: None (occurrence: None)
  Receive Date: 20070111
  Receipt Date: 20070104
  Transmission Date: 20070707
  Serious: Yes (Death, Hospitalization)
  Sender: FDA-Public Use
  Company Number: DE-BAYER-200611269BVD

PATIENT
  Age: 61 Year
  Sex: Male

DRUGS (8)
  1. AVELOX [Suspect]
     Indication: COUGH
     Route: 048
     Dates: start: 20060829
  2. SIMVASTATIN [Concomitant]
     Indication: LIPID METABOLISM DISORDER
     Route: 048
  3. OMEPRAZOLE [Concomitant]
     Indication: REFLUX OESOPHAGITIS
     Route: 048
  4. PAROXAT [Concomitant]
     Indication: DEPRESSION
     Route: 048
  5. RAMIPRIL [Concomitant]
     Indication: HYPERTENSION
     Route: 048
  6. AMLODIPINE [Concomitant]
     Route: 048
  7. BISOPROLOL FUMARATE [Concomitant]
     Route: 048
  8. MARCUMAR [Concomitant]

REACTIONS (4)
  - CIRCULATORY COLLAPSE [None]
  - HEPATITIS [None]
  - RENAL FAILURE [None]
  - TRANSAMINASES INCREASED [None]
